FAERS Safety Report 6609408-7 (Version None)
Quarter: 2010Q1

REPORT INFORMATION
  Report Type: 
  Country: None (occurrence: None)
  Receive Date: 20100302
  Receipt Date: 20100215
  Transmission Date: 20100710
  Serious: Yes (Death)
  Sender: FDA-Public Use
  Company Number: US-JNJFOC-20050404740

PATIENT
  Age: 16 Year
  Weight: 119.75 kg

DRUGS (2)
  1. FENTANYL-100 [Suspect]
     Indication: INTENTIONAL DRUG MISUSE
     Route: 065
     Dates: end: 20030713
  2. METHADONE [Suspect]
     Indication: DRUG USE FOR UNKNOWN INDICATION
     Route: 065
     Dates: end: 20030713

REACTIONS (3)
  - DRUG ABUSE [None]
  - DRUG TOXICITY [None]
  - PNEUMONIA [None]
